FAERS Safety Report 7388128-8 (Version None)
Quarter: 2011Q1

REPORT INFORMATION
  Report Type: 
  Country: None (occurrence: None)
  Receive Date: 20110324
  Receipt Date: 20110315
  Transmission Date: 20110831
  Serious: Yes (Death, Hospitalization)
  Sender: FDA-Public Use
  Company Number: 2011MA002456

PATIENT
  Age: 24 Year
  Sex: Female

DRUGS (1)
  1. FLUOXETINE [Suspect]
     Indication: DEPRESSION
     Dates: start: 19970201

REACTIONS (10)
  - RHABDOMYOLYSIS [None]
  - DELUSION [None]
  - MENINGEAL DISORDER [None]
  - SEROTONIN SYNDROME [None]
  - BRAIN OEDEMA [None]
  - BRAIN HERNIATION [None]
  - INSOMNIA [None]
  - SHOCK [None]
  - CARDIOVASCULAR DISORDER [None]
  - NERVOUSNESS [None]
